FAERS Safety Report 5880040-6 (Version None)
Quarter: 2008Q3

REPORT INFORMATION
  Report Type: 
  Country: None (occurrence: None)
  Receive Date: 20080912
  Receipt Date: 20080829
  Transmission Date: 20090109
  Serious: Yes (Hospitalization)
  Sender: FDA-Public Use
  Company Number: JP-GENENTECH-261974

PATIENT
  Sex: Male

DRUGS (6)
  1. AVASTIN [Suspect]
     Indication: COLORECTAL CANCER METASTATIC
     Dosage: 270 MG, Q2W
     Route: 041
     Dates: end: 20080426
  2. IRINOTECAN HCL [Suspect]
     Indication: COLORECTAL CANCER METASTATIC
     Dosage: 200 MG, Q2W
     Route: 041
     Dates: start: 20071214, end: 20080426
  3. FLUOROURACIL [Suspect]
     Indication: COLORECTAL CANCER METASTATIC
     Dosage: 600 MG, Q2W
     Dates: start: 20070606, end: 20080426
  4. OXALIPLATIN [Suspect]
     Indication: COLORECTAL CANCER METASTATIC
     Dosage: 130 MG, Q2W
     Route: 041
     Dates: start: 20070606, end: 20071123
  5. LEUCOVORIN CALCIUM [Suspect]
     Indication: COLORECTAL CANCER METASTATIC
     Dosage: 150 MG, Q2W
     Route: 041
     Dates: start: 20070606
  6. ISOVORIN [Concomitant]
     Indication: DRUG USE FOR UNKNOWN INDICATION

REACTIONS (3)
  - CELLULITIS [None]
  - DECUBITUS ULCER [None]
  - HAEMORRHAGE [None]
